FAERS Safety Report 16870201 (Version 3)
Quarter: 2019Q4

REPORT INFORMATION
  Report Type: Report from Study
  Country: MX (occurrence: MX)
  Receive Date: 20190930
  Receipt Date: 20191016
  Transmission Date: 20200122
  Serious: Yes (Life-Threatening, Hospitalization, Other)
  Sender: FDA-Public Use
  Company Number: PHHY2019MX225848

PATIENT
  Age: 73 Year
  Sex: Female
  Weight: 64 kg

DRUGS (5)
  1. EXFORGE [Suspect]
     Active Substance: AMLODIPINE BESYLATE\VALSARTAN
     Indication: HYPERTENSION
     Dosage: 1 DF (AMLODIPINE 5 MG, VALSARTAN 320 MG), QD (10 YEARS AGO)
     Route: 048
     Dates: end: 20190816
  2. DEXIVANT [Concomitant]
     Indication: PROPHYLAXIS
     Dosage: 1 DF, QHS (8 DAYS AGO)
     Route: 048
  3. CONCOR [Concomitant]
     Active Substance: BISOPROLOL FUMARATE
     Indication: HYPERTENSION
     Dosage: 1 DF, QD (ONE WEEK AGO), IN THE MORNING
     Route: 048
  4. EXFORGE [Suspect]
     Active Substance: AMLODIPINE BESYLATE\VALSARTAN
     Dosage: 1 DF (AMLODIPINE 5 MG, VALSARTAN 160 MG), QD
     Route: 048
     Dates: start: 20190920
  5. MINIPRES [Concomitant]
     Active Substance: PRAZOSIN HYDROCHLORIDE
     Indication: BLOOD PRESSURE INCREASED
     Dosage: UNK
     Route: 065

REACTIONS (9)
  - Tremor [Not Recovered/Not Resolved]
  - Dizziness [Unknown]
  - Hypertensive crisis [Recovered/Resolved]
  - Salmonellosis [Recovered/Resolved]
  - Tremor [Recovered/Resolved]
  - Hypokinesia [Unknown]
  - Dyspnoea [Unknown]
  - Feeling abnormal [Unknown]
  - Head discomfort [Unknown]

NARRATIVE: CASE EVENT DATE: 20190816
